FAERS Safety Report 6656912-1 (Version None)
Quarter: 2010Q1

REPORT INFORMATION
  Report Type: 
  Country: None (occurrence: None)
  Receive Date: 20100329
  Receipt Date: 20100329
  Transmission Date: 20100710
  Serious: Yes (Hospitalization)
  Sender: FDA-Public Use
  Company Number: None

PATIENT
  Sex: Male
  Weight: 67.5 kg

DRUGS (13)
  1. CYTARABINE [Suspect]
     Dosage: 875 MG
     Dates: end: 20090607
  2. ETOPOSIDE [Suspect]
     Dosage: 175 MG
     Dates: end: 20090607
  3. MITOXANTRONE HYDROCHLORIDE [Suspect]
     Dosage: 14 MG
     Dates: end: 20090607
  4. RAPAMUNE [Suspect]
     Dosage: 4 MG
     Dates: end: 20090604
  5. ACYCLOVIR [Concomitant]
  6. AVELOX [Concomitant]
  7. DIFLUCAN [Concomitant]
  8. HYDREA [Concomitant]
  9. MAGNESIUM OXIDE [Concomitant]
  10. NICOTINE [Concomitant]
  11. PHENERGAN HCL [Concomitant]
  12. POTASSIUM CHLORIDE [Concomitant]
  13. TYLENOL-500 [Concomitant]

REACTIONS (1)
  - FEBRILE NEUTROPENIA [None]
